FAERS Safety Report 7508087-4 (Version None)
Quarter: 2011Q2

REPORT INFORMATION
  Report Type: 
  Country: None (occurrence: None)
  Receive Date: 20110527
  Receipt Date: 20110322
  Transmission Date: 20111010
  Serious: Yes (Hospitalization)
  Sender: FDA-Public Use
  Company Number: US-BAYER-2010-004678

PATIENT
  Sex: Female

DRUGS (4)
  1. PREMARIN [Concomitant]
  2. SYNTHROID [Concomitant]
     Indication: HYPOTHYROIDISM
  3. YAZ [Suspect]
     Dosage: UNK
     Dates: start: 20000801, end: 20070601
  4. YASMIN [Suspect]
     Dosage: UNK
     Route: 048
     Dates: start: 20000801, end: 20070601

REACTIONS (3)
  - GALLBLADDER DISORDER [None]
  - CHOLELITHIASIS [None]
  - CHOLECYSTITIS [None]
